FAERS Safety Report 4507228-0 (Version None)
Quarter: 2004Q4

REPORT INFORMATION
  Report Type: 
  Country: None (occurrence: None)
  Receive Date: 20041115
  Receipt Date: 20041028
  Transmission Date: 20050328
  Serious: Yes (Death, Hospitalization)
  Sender: FDA-Public Use
  Company Number: 239825

PATIENT
  Age: 36 Year
  Sex: Female
  Weight: 4.8 kg

DRUGS (6)
  1. NOVOSEVEN [Suspect]
     Indication: PULMONARY HAEMORRHAGE
     Dosage: 2X30 UG/KG Q 11 H, INTRAVENOUS
     Route: 042
     Dates: start: 20041001, end: 20041001
  2. CEFTRIAXONE [Concomitant]
  3. VANCOMYCIN [Concomitant]
  4. AMIKACIN [Concomitant]
  5. DIGOXIN [Concomitant]
  6. SPIRONOLACTONE [Concomitant]

REACTIONS (6)
  - ACTIVATED PARTIAL THROMBOPLASTIN TIME PROLONGED [None]
  - BACTERIAL INFECTION [None]
  - DISSEMINATED INTRAVASCULAR COAGULATION [None]
  - HISTIOCYTOSIS HAEMATOPHAGIC [None]
  - HYPOTHERMIA [None]
  - PULMONARY HAEMORRHAGE [None]
